FAERS Safety Report 6328480-5 (Version None)
Quarter: 2009Q3

REPORT INFORMATION
  Report Type: 
  Country: None (occurrence: None)
  Receive Date: 20090826
  Receipt Date: 20070430
  Transmission Date: 20100115
  Serious: Yes (Hospitalization, Other)
  Sender: FDA-Public Use
  Company Number: US-ASTRAZENECA-2006UW25038

PATIENT
  Age: 43 Year
  Sex: Male
  Weight: 96.4 kg

DRUGS (22)
  1. SEROQUEL [Suspect]
     Indication: DEPRESSION
     Dosage: 100 MG TO 400 MG
     Route: 048
     Dates: start: 20000315
  2. SEROQUEL [Suspect]
     Indication: INSOMNIA
     Dosage: 100 MG TO 400 MG
     Route: 048
     Dates: start: 20000315
  3. SEROQUEL [Suspect]
     Indication: MENTAL DISORDER
     Dosage: 100 MG TO 400 MG
     Route: 048
     Dates: start: 20000315
  4. SEROQUEL [Suspect]
     Route: 048
  5. SEROQUEL [Suspect]
     Route: 048
  6. SEROQUEL [Suspect]
     Route: 048
  7. ZYPREXA [Concomitant]
  8. KLONOPIN [Concomitant]
     Indication: ANXIETY
     Dosage: 2 TO 3 MG
     Dates: start: 20000315
  9. KLONOPIN [Concomitant]
     Indication: MENTAL DISORDER
     Dosage: 2 TO 3 MG
     Dates: start: 20000315
  10. LIPITOR [Concomitant]
     Indication: HYPERLIPIDAEMIA
     Dates: start: 20000315
  11. ATROVENT [Concomitant]
     Dosage: TID
     Dates: start: 20000315
  12. PRILOSEC [Concomitant]
     Indication: PEPTIC ULCER
     Dosage: 20 EVERY DAY
     Dates: start: 20000315
  13. COMBIVENT [Concomitant]
     Indication: OBSTRUCTIVE AIRWAYS DISORDER
     Dosage: 6 PUFFS QID, 2 INHALES QID
     Dates: start: 20010527
  14. FLOVENT [Concomitant]
     Indication: OBSTRUCTIVE AIRWAYS DISORDER
     Dates: start: 20010527
  15. DEPAKOTE ER [Concomitant]
     Indication: MENTAL DISORDER
     Dosage: 500 TO 1000 MG
     Dates: start: 20010527
  16. TOPROL-XL [Concomitant]
     Indication: BLOOD PRESSURE
     Dates: start: 20040818
  17. NEXIUM [Concomitant]
     Indication: GASTROOESOPHAGEAL REFLUX DISEASE
     Route: 048
     Dates: start: 20030313
  18. CLARINEX [Concomitant]
     Indication: SEASONAL ALLERGY
     Dates: start: 20040818
  19. CLARINEX [Concomitant]
     Indication: MULTIPLE ALLERGIES
     Dates: start: 20040818
  20. CLARITIN [Concomitant]
     Dates: start: 20060206
  21. SINGULAIR [Concomitant]
     Route: 048
     Dates: start: 20030312
  22. SEREVENT [Concomitant]
     Indication: OBSTRUCTIVE AIRWAYS DISORDER
     Dates: start: 20010527

REACTIONS (7)
  - ACUTE HEPATIC FAILURE [None]
  - AMNESIA [None]
  - DIABETES MELLITUS [None]
  - DIABETIC COMA [None]
  - NEUROLEPTIC MALIGNANT SYNDROME [None]
  - ORGAN FAILURE [None]
  - TYPE 2 DIABETES MELLITUS [None]
